FAERS Safety Report 15187088 (Version 1)
Quarter: 2018Q3

REPORT INFORMATION
  Report Type: Report from Study
  Country: US (occurrence: US)
  Receive Date: 20180723
  Receipt Date: 20180723
  Transmission Date: 20181010
  Serious: No
  Sender: FDA-Public Use
  Company Number: US-EXELIXIS-CABO-18012033

PATIENT
  Sex: Female

DRUGS (10)
  1. VALIUM [Concomitant]
     Active Substance: DIAZEPAM
     Dosage: UNK
  2. ZOFRAN [Concomitant]
     Active Substance: ONDANSETRON HYDROCHLORIDE
     Dosage: UNK
  3. CABOMETYX [Suspect]
     Active Substance: CABOZANTINIB S-MALATE
     Indication: NON-SMALL CELL LUNG CANCER
     Dosage: 60 MG, QD
     Route: 048
  4. XALKORI [Concomitant]
     Active Substance: CRIZOTINIB
     Dosage: UNK
  5. LEXANOX [Concomitant]
     Dosage: UNK
  6. PEPCID [Concomitant]
     Active Substance: FAMOTIDINE
     Dosage: UNK
  7. OPDIVO [Concomitant]
     Active Substance: NIVOLUMAB
     Indication: NON-SMALL CELL LUNG CANCER
     Dosage: UNK
  8. OXYCODONE [Concomitant]
     Active Substance: OXYCODONE
     Dosage: UNK
  9. NEUROTIN [Concomitant]
     Active Substance: GABAPENTIN
     Dosage: UNK
  10. MS CONTIN [Concomitant]
     Active Substance: MORPHINE SULFATE
     Dosage: UNK

REACTIONS (2)
  - Hepatic enzyme increased [Unknown]
  - Off label use [Unknown]
